FAERS Safety Report 23740204 (Version 1)
Quarter: 2024Q2

REPORT INFORMATION
  Report Type: Spontaneous
  Country: BR (occurrence: BR)
  Receive Date: 20240414
  Receipt Date: 20240414
  Transmission Date: 20240716
  Serious: Yes (Hospitalization, Other)
  Sender: FDA-Public Use
  Company Number: BR-JNJFOC-20240418177

PATIENT
  Age: 52 Year
  Sex: Male

DRUGS (3)
  1. SPRAVATO [Suspect]
     Active Substance: ESKETAMINE
     Indication: Product used for unknown indication
     Dates: start: 202210
  2. SPRAVATO [Suspect]
     Active Substance: ESKETAMINE
  3. SPRAVATO [Suspect]
     Active Substance: ESKETAMINE

REACTIONS (6)
  - Disease complication [Unknown]
  - Diabetes mellitus [Unknown]
  - Suicidal ideation [Unknown]
  - Depression [Unknown]
  - Therapeutic product effect incomplete [Unknown]
  - Off label use [Unknown]
